FAERS Safety Report 9678862 (Version 1)
Quarter: 2013Q4

REPORT INFORMATION
  Report Type: Spontaneous
  Country: CN (occurrence: CN)
  Receive Date: 20131108
  Receipt Date: 20131108
  Transmission Date: 20140711
  Serious: Yes (Hospitalization)
  Sender: FDA-Public Use
  Company Number: CN-ROCHE-1300038

PATIENT
  Age: 59 Year
  Sex: Female

DRUGS (4)
  1. TRASTUZUMAB [Suspect]
     Indication: HER-2 POSITIVE BREAST CANCER
     Dosage: 12 CYCLES
     Route: 065
     Dates: start: 200907, end: 201007
  2. CAPECITABINE [Concomitant]
     Indication: HER-2 POSITIVE BREAST CANCER
     Dosage: 3 CYCLES
     Route: 065
     Dates: start: 200907, end: 201007
  3. CAPECITABINE [Concomitant]
     Dosage: 12 CYCLES
     Route: 065
  4. DOCETAXEL [Concomitant]
     Indication: HER-2 POSITIVE BREAST CANCER
     Dosage: 3 CYCLES
     Route: 065
     Dates: start: 200907, end: 201007

REACTIONS (1)
  - Capillary leak syndrome [Recovering/Resolving]
